FAERS Safety Report 4783979-8 (Version None)
Quarter: 2005Q3

REPORT INFORMATION
  Report Type: 
  Country: None (occurrence: None)
  Receive Date: 20050927
  Receipt Date: 20050805
  Transmission Date: 20060218
  Serious: No
  Sender: FDA-Public Use
  Company Number: USA0508104761

PATIENT
  Age: 10 Year
  Sex: Male
  Weight: 48 kg

DRUGS (1)
  1. STRATTERA [Suspect]
     Indication: ATTENTION DEFICIT/HYPERACTIVITY DISORDER
     Dosage: 40 MG
     Dates: start: 20050805

REACTIONS (5)
  - AGGRESSION [None]
  - IRRITABILITY [None]
  - PERSONALITY CHANGE [None]
  - SOMNOLENCE [None]
  - TEARFULNESS [None]
